FAERS Safety Report 11924589 (Version 3)
Quarter: 2016Q1

REPORT INFORMATION
  Report Type: Spontaneous
  Country: FR (occurrence: FR)
  Receive Date: 20160118
  Receipt Date: 20160309
  Transmission Date: 20160526
  Serious: Yes (Other)
  Sender: FDA-Public Use
  Company Number: FR-GLAXOSMITHKLINE-FR2016GSK004255

PATIENT
  Age: 7 Month
  Sex: Male
  Weight: 7 kg

DRUGS (2)
  1. VENTOLINE [Concomitant]
     Active Substance: ALBUTEROL
     Indication: BRONCHIOLITIS
     Dosage: UNK
     Route: 055
     Dates: start: 20151207, end: 20151214
  2. FLIXOTIDE EVOHALER [Suspect]
     Active Substance: FLUTICASONE PROPIONATE
     Indication: RESPIRATORY TRACT CONGESTION
     Dosage: 50 UNK, BID
     Route: 055
     Dates: start: 20151207, end: 20160108

REACTIONS (4)
  - Drug administered to patient of inappropriate age [Unknown]
  - Haemoptysis [Recovered/Resolved]
  - Haematemesis [Recovered/Resolved]
  - Bloody discharge [Recovered/Resolved]

NARRATIVE: CASE EVENT DATE: 20151207
